FAERS Safety Report 6379045-0 (Version None)
Quarter: 2009Q3

REPORT INFORMATION
  Report Type: 
  Country: None (occurrence: None)
  Receive Date: 20090928
  Receipt Date: 20090603
  Transmission Date: 20100115
  Serious: No
  Sender: FDA-Public Use
  Company Number: US-BAYER-200913952BCC

PATIENT

DRUGS (2)
  1. ALEVE [Suspect]
     Indication: HEADACHE
     Dosage: UNIT DOSE: 220 MG
     Route: 048
  2. ALCOHOL [Concomitant]
     Dosage: TOOK TWO BEERS
     Route: 048

REACTIONS (1)
  - NO ADVERSE EVENT [None]
